FAERS Safety Report 4269821-2 (Version None)
Quarter: 2004Q1

REPORT INFORMATION
  Report Type: 
  Country: None (occurrence: None)
  Receive Date: 20040112
  Receipt Date: 20040108
  Transmission Date: 20041129
  Serious: Yes (Other)
  Sender: FDA-Public Use
  Company Number: 2002-08-0364 (18)

PATIENT
  Age: 37 Year
  Sex: Female

DRUGS (1)
  1. THALOMID [Suspect]
     Indication: MULTIPLE MYELOMA
     Dosage: 250 MG, QD, ORAL
     Route: 048
     Dates: start: 20020118

REACTIONS (8)
  - BLOOD CREATINE INCREASED [None]
  - BLOOD GLUCOSE INCREASED [None]
  - BLOOD HUMAN CHORIONIC GONADOTROPIN INCREASED [None]
  - CALCINOSIS [None]
  - ENDOMETRIAL DISORDER [None]
  - OVARIAN CYST [None]
  - PCO2 DECREASED [None]
  - PREGNANCY TEST FALSE POSITIVE [None]
